FAERS Safety Report 8927962 (Version 1)
Quarter: 2012Q4

REPORT INFORMATION
  Report Type: Spontaneous
  Country: US (occurrence: None)
  Receive Date: 20121121
  Receipt Date: 20121121
  Transmission Date: 20130627
  Serious: Yes (Life-Threatening)
  Sender: FDA-Public Use
  Company Number: None

PATIENT
  Age: 26 Year
  Sex: Male

DRUGS (1)
  1. VIVACAINE [Suspect]
     Indication: TOOTHACHE
     Dosage: 9 mg, once, submuscosal
1:200,00, once, submucosal
     Dates: start: 20121028

REACTIONS (1)
  - Hypersensitivity [None]
